FAERS Safety Report 11313382 (Version 1)
Quarter: 2015Q3

REPORT INFORMATION
  Report Type: Spontaneous
  Country: US (occurrence: US)
  Receive Date: 20150727
  Receipt Date: 20150727
  Transmission Date: 20151125
  Serious: No
  Sender: FDA-Public Use
  Company Number: GXBR2015US001669

PATIENT
  Age: 46 Year
  Sex: Female

DRUGS (2)
  1. XANAX [Concomitant]
     Active Substance: ALPRAZOLAM
     Indication: TREMOR
     Dosage: 1/2  DF, QHS
     Route: 048
  2. GLATOPA [Suspect]
     Active Substance: GLATIRAMER ACETATE
     Indication: MULTIPLE SCLEROSIS
     Dosage: 20 MG, QD
     Route: 065
     Dates: start: 20150704, end: 20150707

REACTIONS (7)
  - Palpitations [Recovering/Resolving]
  - Muscular weakness [Recovering/Resolving]
  - Disturbance in attention [Not Recovered/Not Resolved]
  - Tremor [Recovering/Resolving]
  - Abdominal discomfort [Recovering/Resolving]
  - Chest pain [Recovering/Resolving]
  - Erythema [Recovering/Resolving]

NARRATIVE: CASE EVENT DATE: 20150704
